FAERS Safety Report 7489020-0 (Version None)
Quarter: 2011Q1

REPORT INFORMATION
  Report Type: 
  Country: None (occurrence: None)
  Receive Date: 20110316
  Receipt Date: 20101011
  Transmission Date: 20110831
  Serious: Yes (Hospitalization)
  Sender: FDA-Public Use
  Company Number: 2010MB000045

PATIENT
  Age: 69 Year
  Sex: Female
  Weight: 67.1 kg

DRUGS (8)
  1. LORATADINE [Concomitant]
  2. OMEPRAZOLE [Concomitant]
  3. KEFLEX [Suspect]
     Indication: CELLULITIS
     Dosage: 500 MG;TID;PO
     Route: 048
     Dates: start: 20100809, end: 20100801
  4. FOLIC ACID [Concomitant]
  5. CIMZIA [Concomitant]
  6. MELOXICAM [Concomitant]
  7. ACETAMINOPHEN [Concomitant]
  8. ACETAMINOPHEN AND HYDROCODONE BITARTRATE [Concomitant]

REACTIONS (1)
  - DERMATITIS ALLERGIC [None]
